FAERS Safety Report 9008643 (Version 2)
Quarter: 2013Q1

REPORT INFORMATION
  Report Type: Spontaneous
  Country: GB (occurrence: GB)
  Receive Date: 20130111
  Receipt Date: 20130312
  Transmission Date: 20140127
  Serious: Yes (Other)
  Sender: FDA-Public Use
  Company Number: GB-BRISTOL-MYERS SQUIBB COMPANY-17269754

PATIENT
  Age: 22 Year
  Sex: Male

DRUGS (2)
  1. ABILIFY TABS 5 MG [Suspect]
     Dosage: STOPPED 0N 19DEC12 AND RESTARTED ON 23DEC12
     Route: 048
     Dates: start: 20120825
  2. FLUOXETINE [Suspect]
     Route: 048
     Dates: start: 20120825

REACTIONS (6)
  - Euphoric mood [Not Recovered/Not Resolved]
  - Insomnia [Not Recovered/Not Resolved]
  - Depression [Not Recovered/Not Resolved]
  - Agitation [Not Recovered/Not Resolved]
  - Somnolence [Not Recovered/Not Resolved]
  - Anxiety [Not Recovered/Not Resolved]
